FAERS Safety Report 13393378 (Version 2)
Quarter: 2017Q2

REPORT INFORMATION
  Report Type: Spontaneous
  Country: US (occurrence: US)
  Receive Date: 20170331
  Receipt Date: 20170509
  Transmission Date: 20170830
  Serious: Yes (Hospitalization, Other)
  Sender: FDA-Public Use
  Company Number: US-INCYTE CORPORATION-2017IN002281

PATIENT

DRUGS (17)
  1. JAKAFI [Suspect]
     Active Substance: RUXOLITINIB
     Dosage: 5 MG TABLETS (THREE 5 MG TABLETS (15 MG) BID)
     Route: 048
     Dates: start: 20161024, end: 20170306
  2. ASPIRIN                            /00002701/ [Concomitant]
     Active Substance: ASPIRIN
     Indication: PRODUCT USED FOR UNKNOWN INDICATION
     Dosage: 81 MG, QD
     Route: 048
  3. LASIX [Concomitant]
     Active Substance: FUROSEMIDE
     Indication: PRODUCT USED FOR UNKNOWN INDICATION
     Dosage: 40 MG, QD
     Route: 048
  4. ZYLOPRIM [Concomitant]
     Active Substance: ALLOPURINOL
     Indication: PRODUCT USED FOR UNKNOWN INDICATION
     Dosage: 300 MG, QD
     Route: 048
  5. BUSULFAN. [Suspect]
     Active Substance: BUSULFAN
     Indication: MYELOPROLIFERATIVE NEOPLASM
     Dosage: 2 MG, BID
     Route: 048
     Dates: start: 201610, end: 20170306
  6. BUSULFAN. [Suspect]
     Active Substance: BUSULFAN
     Indication: MYELOFIBROSIS
  7. VITAMIN B COMPLEX [Concomitant]
     Active Substance: CYANOCOBALAMIN\DEXPANTHENOL\NIACINAMIDE\PYRIDOXINE HYDROCHLORIDE\RIBOFLAVIN 5^-PHOSPHATE SODIUM\THIAMINE HYDROCHLORIDE\VITAMIN B COMPLEX
     Indication: PRODUCT USED FOR UNKNOWN INDICATION
     Dosage: 1 DF, QD
     Route: 048
  8. CREON [Concomitant]
     Active Substance: PANCRELIPASE AMYLASE\PANCRELIPASE LIPASE\PANCRELIPASE PROTEASE
     Indication: PRODUCT USED FOR UNKNOWN INDICATION
     Dosage: 24000 UT, TID
     Route: 048
  9. PAXIL [Concomitant]
     Active Substance: PAROXETINE HYDROCHLORIDE
     Indication: PRODUCT USED FOR UNKNOWN INDICATION
     Dosage: 20 MG, QD
     Route: 065
  10. JAKAFI [Suspect]
     Active Substance: RUXOLITINIB
     Dosage: 15 MG, BID
     Route: 048
     Dates: start: 20170330
  11. MULTIVITAMIN                       /07504101/ [Concomitant]
     Active Substance: VITAMINS
     Indication: PRODUCT USED FOR UNKNOWN INDICATION
     Dosage: 1 DF, QD
     Route: 048
  12. PROTONIX                           /00661201/ [Concomitant]
     Active Substance: OMEPRAZOLE
     Indication: PRODUCT USED FOR UNKNOWN INDICATION
     Dosage: 40 MG, BID
     Route: 048
  13. INDAPAMIDE. [Concomitant]
     Active Substance: INDAPAMIDE
     Indication: PRODUCT USED FOR UNKNOWN INDICATION
     Dosage: 2.5 MG, QD (A.M.)
     Route: 048
  14. JAKAFI [Suspect]
     Active Substance: RUXOLITINIB
     Indication: POLYCYTHAEMIA VERA
     Dosage: 5 MG TABLETS (TWO 5 MG TABLETS (10 MG) BID)
     Route: 048
     Dates: start: 20161006, end: 201610
  15. BUSULFAN. [Suspect]
     Active Substance: BUSULFAN
     Indication: POLYCYTHAEMIA VERA
     Dosage: UNK
     Route: 048
     Dates: start: 201704
  16. OXYCODONE [Concomitant]
     Active Substance: OXYCODONE
     Indication: PRODUCT USED FOR UNKNOWN INDICATION
     Dosage: 5 MG, PRN, Q6 HOURS
     Route: 048
  17. AUGMENTIN [Concomitant]
     Active Substance: AMOXICILLIN\CLAVULANATE POTASSIUM
     Indication: PRODUCT USED FOR UNKNOWN INDICATION
     Dosage: UNK
     Route: 065

REACTIONS (32)
  - Acute respiratory failure [Recovered/Resolved]
  - Skin ulcer [Unknown]
  - Rash macular [Unknown]
  - Breath sounds abnormal [Unknown]
  - Hypomagnesaemia [Unknown]
  - Sepsis [Recovered/Resolved]
  - Drug ineffective [Unknown]
  - Bacterial infection [Unknown]
  - Blood blister [Unknown]
  - Rales [Unknown]
  - Abnormal behaviour [Recovered/Resolved]
  - Viral infection [Recovered/Resolved]
  - Dry mouth [Unknown]
  - Dehydration [Unknown]
  - Pyrexia [Recovered/Resolved]
  - Mental status changes [Recovered/Resolved]
  - Pulmonary congestion [Unknown]
  - Fluid retention [Unknown]
  - Confusional state [Recovered/Resolved]
  - Blood count abnormal [Unknown]
  - Diarrhoea [Unknown]
  - Dyspnoea [Unknown]
  - Pneumonia [Unknown]
  - Cardiomegaly [Unknown]
  - Thyroid mass [Unknown]
  - Ecchymosis [Unknown]
  - Oedema peripheral [Unknown]
  - Encephalitis viral [Recovered/Resolved]
  - Dermatitis bullous [Unknown]
  - Rash erythematous [Unknown]
  - Anaemia [Unknown]
  - Fatigue [Unknown]

NARRATIVE: CASE EVENT DATE: 201703
